FAERS Safety Report 10300218 (Version 4)
Quarter: 2014Q3

REPORT INFORMATION
  Report Type: Report from Study
  Country: BE (occurrence: BE)
  Receive Date: 20140711
  Receipt Date: 20140728
  Transmission Date: 20150326
  Serious: Yes (Death, Hospitalization, Other)
  Sender: FDA-Public Use
  Company Number: BE-ORACLE-ANTE000725

PATIENT
  Age: 60 Year
  Sex: Male
  Weight: 70 kg

DRUGS (8)
  1. LOPERAMIDE HYDROCHLORIDE. [Concomitant]
     Active Substance: LOPERAMIDE HYDROCHLORIDE
     Indication: DIARRHOEA
     Route: 048
     Dates: start: 200007, end: 20031209
  2. NATALIZUMAB [Suspect]
     Active Substance: NATALIZUMAB
     Indication: CROHN^S DISEASE
     Dosage: 300 MG MONTHLY
     Route: 042
     Dates: start: 20030212, end: 20030603
  3. INFLIXIMAB [Concomitant]
     Active Substance: INFLIXIMAB
     Indication: CROHN^S DISEASE
     Dates: start: 199904, end: 200112
  4. IRON [Concomitant]
     Active Substance: IRON
     Indication: ANAEMIA
     Route: 042
     Dates: start: 200103, end: 20031209
  5. AZATHIOPRINE. [Concomitant]
     Active Substance: AZATHIOPRINE
     Indication: CROHN^S DISEASE
     Dates: start: 199609, end: 20021121
  6. PERENTEROL LYOPHILIC [Concomitant]
     Indication: DIARRHOEA
     Route: 048
     Dates: start: 20020710, end: 20031209
  7. BUDESONIDE. [Concomitant]
     Active Substance: BUDESONIDE
     Indication: CROHN^S DISEASE
     Dates: start: 20020103, end: 20020524
  8. BUDESONIDE. [Concomitant]
     Active Substance: BUDESONIDE
     Indication: CROHN^S DISEASE
     Route: 048
     Dates: start: 20020525, end: 20020606

REACTIONS (1)
  - Progressive multifocal leukoencephalopathy [Fatal]

NARRATIVE: CASE EVENT DATE: 20030709
